FAERS Safety Report 6004685-8 (Version None)
Quarter: 2008Q4

REPORT INFORMATION
  Report Type: 
  Country: None (occurrence: None)
  Receive Date: 20081216
  Receipt Date: 20081204
  Transmission Date: 20090506
  Serious: Yes (Hospitalization)
  Sender: FDA-Public Use
  Company Number: JP-PFIZER INC-2008100971

PATIENT

DRUGS (10)
  1. TOLTERODINE TARTRATE [Suspect]
     Dosage: 4 MG QD  TDD:4 MG
     Route: 048
     Dates: start: 20080605, end: 20080703
  2. HARNAL [Concomitant]
  3. AMLODIN [Concomitant]
  4. NU LOTAN [Concomitant]
  5. MUCOSOLVAN [Concomitant]
  6. MUCODYNE [Concomitant]
  7. FAMOTIDINE [Concomitant]
  8. UNIPHYL [Concomitant]
  9. MOHRUS [Concomitant]
  10. PL [Concomitant]

REACTIONS (1)
  - BLADDER NEOPLASM [None]
